FAERS Safety Report 13801761 (Version 3)
Quarter: 2017Q3

REPORT INFORMATION
  Report Type: Report from Study
  Country: US (occurrence: US)
  Receive Date: 20170727
  Receipt Date: 20170824
  Transmission Date: 20171127
  Serious: Yes (Death, Hospitalization, Other)
  Sender: FDA-Public Use
  Company Number: US-EISAI MEDICAL RESEARCH-EC-2017-029534

PATIENT
  Age: 73 Year
  Sex: Female
  Weight: 58.3 kg

DRUGS (20)
  1. VITAMIN B COMPLEX [Concomitant]
     Active Substance: CYANOCOBALAMIN\DEXPANTHENOL\NIACINAMIDE\PYRIDOXINE HYDROCHLORIDE\RIBOFLAVIN 5^-PHOSPHATE SODIUM\THIAMINE HYDROCHLORIDE\VITAMIN B COMPLEX
  2. VITAMIN C [Concomitant]
     Active Substance: ASCORBIC ACID
  3. NORVASC [Concomitant]
     Active Substance: AMLODIPINE BESYLATE
  4. VITAMIN D3 [Concomitant]
     Active Substance: CHOLECALCIFEROL
  5. LIPITOR [Concomitant]
     Active Substance: ATORVASTATIN CALCIUM
  6. POLYETHYLENE GLYCOL [Concomitant]
     Active Substance: POLYETHYLENE GLYCOLS
  7. OXYCODONE [Concomitant]
     Active Substance: OXYCODONE
  8. LOTRIMIN [Concomitant]
     Active Substance: CLOTRIMAZOLE
  9. DULCOLAX NOS [Concomitant]
     Active Substance: BISACODYL OR DOCUSATE SODIUM
  10. PRAVACHOL [Concomitant]
     Active Substance: PRAVASTATIN SODIUM
  11. DILAUDID [Concomitant]
     Active Substance: HYDROMORPHONE HYDROCHLORIDE
  12. LOPRESSOR [Concomitant]
     Active Substance: METOPROLOL TARTRATE
  13. ASPIRIN. [Concomitant]
     Active Substance: ASPIRIN
  14. SENNOSIDES. [Concomitant]
     Active Substance: SENNOSIDES
  15. TYLENOL [Concomitant]
     Active Substance: ACETAMINOPHEN
  16. DUONEB [Concomitant]
     Active Substance: ALBUTEROL SULFATE\IPRATROPIUM BROMIDE
  17. THIAMINE. [Concomitant]
     Active Substance: THIAMINE
  18. LENVATINIB [Suspect]
     Active Substance: LENVATINIB
     Indication: ANAPLASTIC THYROID CANCER
     Dates: start: 20170707, end: 20170720
  19. COZAAR [Concomitant]
     Active Substance: LOSARTAN POTASSIUM
  20. FERROUS SULFATE. [Concomitant]
     Active Substance: FERROUS SULFATE

REACTIONS (7)
  - Presyncope [Recovered/Resolved]
  - Hyponatraemia [Recovered/Resolved]
  - Accidental overdose [Recovered/Resolved]
  - Hyperkalaemia [Recovered/Resolved]
  - Hypertension [Recovered/Resolved]
  - Dehydration [Recovered/Resolved]
  - Malignant neoplasm progression [Fatal]

NARRATIVE: CASE EVENT DATE: 20170707
